FAERS Safety Report 20678157 (Version 2)
Quarter: 2022Q2

REPORT INFORMATION
  Report Type: Spontaneous
  Country: US (occurrence: US)
  Receive Date: 20220406
  Receipt Date: 20220408
  Transmission Date: 20220721
  Serious: Yes (Other)
  Sender: FDA-Public Use
  Company Number: US-LUPIN PHARMACEUTICALS INC.-2022-04880

PATIENT
  Age: 94 Year
  Sex: Female

DRUGS (3)
  1. CLOBETASOL [Suspect]
     Active Substance: CLOBETASOL
     Indication: Dermatosis
     Dosage: UNK
     Route: 061
  2. TRIAMCINOLONE [Suspect]
     Active Substance: TRIAMCINOLONE
     Indication: Dermatosis
     Dosage: UNK
     Route: 026
  3. CEMIPLIMAB [Concomitant]
     Active Substance: CEMIPLIMAB
     Indication: Squamous cell carcinoma
     Dosage: UNK (5 CYCLES OF CEMIPLIMAB)
     Route: 065

REACTIONS (1)
  - Drug ineffective [Unknown]
